FAERS Safety Report 4332771-7 (Version None)
Quarter: 2004Q1

REPORT INFORMATION
  Report Type: 
  Country: None (occurrence: None)
  Receive Date: 20040330
  Receipt Date: 20040315
  Transmission Date: 20041129
  Serious: Yes (Hospitalization)
  Sender: FDA-Public Use
  Company Number: 193394

PATIENT
  Sex: Male

DRUGS (1)
  1. AVONEX [Suspect]
     Indication: MULTIPLE SCLEROSIS
     Dosage: 30 MCG QW IM
     Route: 030
     Dates: start: 20040107, end: 20040220

REACTIONS (5)
  - BLOOD PHOSPHORUS DECREASED [None]
  - HEPATIC ENZYME INCREASED [None]
  - LYMPHOPENIA [None]
  - MUSCULAR WEAKNESS [None]
  - THERAPY NON-RESPONDER [None]
